FAERS Safety Report 9030328 (Version 3)
Quarter: 2013Q1

REPORT INFORMATION
  Report Type: Spontaneous
  Country: FR (occurrence: FR)
  Receive Date: 20130122
  Receipt Date: 20130212
  Transmission Date: 20140127
  Serious: Yes (Hospitalization, Other)
  Sender: FDA-Public Use
  Company Number: FR-PFIZER INC-2013021433

PATIENT
  Age: 44 Year
  Sex: Female

DRUGS (10)
  1. LYRICA [Suspect]
     Dosage: 50 MG DAILY
     Route: 048
     Dates: end: 20121219
  2. ANSATIPINE [Suspect]
     Dosage: 450 MG DAILY
     Route: 048
     Dates: end: 20121219
  3. FLUCONAZOLE [Suspect]
     Indication: CRYPTOCOCCOSIS
     Dosage: 400 MG DAILY
     Route: 048
     Dates: start: 20121109, end: 20121219
  4. ISENTRESS [Suspect]
     Dosage: 800 MG/DAY
     Route: 048
     Dates: start: 20121109, end: 201212
  5. ISENTRESS [Suspect]
     Dosage: 800 MG/DAY
     Route: 048
     Dates: start: 20121207, end: 20121219
  6. TRUVADA [Suspect]
     Dosage: 1 DF, 1X/DAY
     Route: 048
     Dates: start: 20121109, end: 20121219
  7. WELLVONE [Suspect]
     Dosage: 750 MG/5 ML AT 1 SPOON, 2X/DAY
     Route: 048
     Dates: end: 20121219
  8. RIMIFON [Suspect]
     Dosage: 200 MG DAILY
     Route: 048
     Dates: end: 20121219
  9. VITAMIN B1 AND B6 [Concomitant]
     Dosage: 1 DF, 3X/DAY
  10. INTELENCE [Concomitant]
     Dosage: UNK
     Dates: start: 201212, end: 20121207

REACTIONS (14)
  - Drug reaction with eosinophilia and systemic symptoms [Recovered/Resolved]
  - Pruritus [Recovered/Resolved]
  - Erythema [Recovered/Resolved]
  - Liver injury [Recovered/Resolved]
  - Eosinophilia [Recovered/Resolved]
  - Agranulocytosis [Recovered/Resolved]
  - Haematemesis [Recovered/Resolved]
  - Face oedema [Recovered/Resolved]
  - Febrile neutropenia [Recovered/Resolved]
  - Oedema peripheral [Recovered/Resolved]
  - Vomiting [Recovered/Resolved]
  - Decreased appetite [Recovered/Resolved]
  - Skin exfoliation [Recovered/Resolved]
  - Pyrexia [Recovered/Resolved]
